FAERS Safety Report 4542333-4 (Version None)
Quarter: 2004Q4

REPORT INFORMATION
  Report Type: 
  Country: None (occurrence: None)
  Receive Date: 20041227
  Receipt Date: 20041209
  Transmission Date: 20050328
  Serious: Yes (Hospitalization)
  Sender: FDA-Public Use
  Company Number: 202115

PATIENT
  Age: 42 Year
  Sex: Female
  Weight: 99.7913 kg

DRUGS (5)
  1. AVONEX [Suspect]
     Indication: MULTIPLE SCLEROSIS
     Dosage: 30 UG; QW; IM
     Route: 030
     Dates: start: 20031101, end: 20040101
  2. AVONEX [Suspect]
     Dosage: 30 UG; QW; IM
     Route: 030
     Dates: start: 20040101, end: 20040201
  3. AVONEX [Suspect]
     Dosage: 30 UG; QW; IM
     Route: 030
     Dates: start: 20040301
  4. DURAGESIC [Concomitant]
  5. KLONOPIN [Concomitant]

REACTIONS (10)
  - BLOOD POTASSIUM DECREASED [None]
  - COMPUTERISED TOMOGRAM ABNORMAL [None]
  - DEEP VEIN THROMBOSIS [None]
  - DYSPNOEA [None]
  - GASTROENTERITIS VIRAL [None]
  - HYPOAESTHESIA [None]
  - INJECTION SITE HAEMORRHAGE [None]
  - INJECTION SITE PAIN [None]
  - OESOPHAGEAL STENOSIS [None]
  - UTERINE POLYP [None]
